FAERS Safety Report 8153705-3 (Version None)
Quarter: 2012Q1

REPORT INFORMATION
  Report Type: 
  Country: None (occurrence: None)
  Receive Date: 20120221
  Receipt Date: 20120218
  Transmission Date: 20120608
  Serious: Yes (Other)
  Sender: FDA-Public Use
  Company Number: US-GLAXOSMITHKLINE-A0966494A

PATIENT
  Sex: Female
  Weight: 110 kg

DRUGS (1)
  1. ALLI [Suspect]
     Indication: WEIGHT LOSS DIET
     Route: 048

REACTIONS (2)
  - RECTAL HAEMORRHAGE [None]
  - THERAPEUTIC RESPONSE UNEXPECTED [None]
